FAERS Safety Report 17949572 (Version 1)
Quarter: 2020Q2

REPORT INFORMATION
  Report Type: Report from Study
  Country: None (occurrence: US)
  Receive Date: 20200626
  Receipt Date: 20200626
  Transmission Date: 20200714
  Serious: Yes (Other)
  Sender: FDA-Public Use
  Company Number: US-ABBVIE-20K-163-3453687-00

PATIENT
  Sex: Female

DRUGS (2)
  1. RINVOQ [Suspect]
     Active Substance: UPADACITINIB
     Indication: RHEUMATOID ARTHRITIS
     Dosage: ER TABLET
     Route: 048
     Dates: start: 201912, end: 202002
  2. RINVOQ [Suspect]
     Active Substance: UPADACITINIB
     Dosage: ER TABLET
     Route: 048
     Dates: start: 202003

REACTIONS (3)
  - Hip surgery [Unknown]
  - Joint swelling [Not Recovered/Not Resolved]
  - Nodule [Not Recovered/Not Resolved]
